FAERS Safety Report 9045930 (Version 1)
Quarter: 2013Q1

REPORT INFORMATION
  Report Type: Report from Study
  Country: US (occurrence: US)
  Receive Date: 20130201
  Receipt Date: 20130201
  Transmission Date: 20140127
  Serious: No
  Sender: FDA-Public Use
  Company Number: US-ABBOTT-12P-163-1019754-00

PATIENT
  Age: 62 Year
  Sex: Female

DRUGS (22)
  1. HUMIRA [Suspect]
     Indication: RHEUMATOID ARTHRITIS
     Dates: end: 201203
  2. HUMIRA [Suspect]
     Dates: start: 201208, end: 201209
  3. HUMIRA [Suspect]
     Dates: start: 201210, end: 201211
  4. HUMIRA [Suspect]
     Dates: start: 201211, end: 20121120
  5. METHOREXATE [Concomitant]
     Indication: PRODUCT USED FOR UNKNOWN INDICATION
  6. LOSARTAN [Concomitant]
     Indication: HYPERTENSION
  7. LEVOTHYROXINE [Concomitant]
     Indication: THYROID DISORDER
  8. FENOFIBRATE [Concomitant]
     Indication: BLOOD CHOLESTEROL
  9. METFORMIN [Concomitant]
     Indication: DIABETES MELLITUS
  10. PROZAC [Concomitant]
     Indication: DEPRESSION
     Dosage: 40 MG IN AM, 20 MG AT NOON
  11. GLIMEPIRIDE [Concomitant]
     Indication: DIABETES MELLITUS
     Dosage: IN PM
  12. CITRACIL CALCIUM [Concomitant]
     Indication: PRODUCT USED FOR UNKNOWN INDICATION
     Dosage: 1 IN AM, 1 AT NOON
  13. SIMVASTATIN [Concomitant]
     Indication: BLOOD CHOLESTEROL
  14. MAGNESIUM [Concomitant]
     Indication: PRODUCT USED FOR UNKNOWN INDICATION
     Dosage: 1 IN AM, 1 AT NOON
  15. VITAMIN D3 [Concomitant]
     Indication: PRODUCT USED FOR UNKNOWN INDICATION
     Dosage: IN AM
  16. FOLIC ACID [Concomitant]
     Indication: PRODUCT USED FOR UNKNOWN INDICATION
     Dosage: IN AM
  17. CENTRUM SILVER MULTIPLE VITAMIN [Concomitant]
     Indication: PRODUCT USED FOR UNKNOWN INDICATION
  18. ASPIRIN [Concomitant]
     Indication: PRODUCT USED FOR UNKNOWN INDICATION
     Dosage: 81 MG DAILY
  19. IRON [Concomitant]
     Indication: ANAEMIA
     Dosage: 65 MG DAILY
  20. VITAMIN B12 [Concomitant]
     Indication: PRODUCT USED FOR UNKNOWN INDICATION
  21. FISH OIL [Concomitant]
     Indication: PRODUCT USED FOR UNKNOWN INDICATION
  22. PREVACID [Concomitant]
     Indication: GASTROOESOPHAGEAL REFLUX DISEASE
     Dosage: 100 MG IN AM, 50 MG IN PM

REACTIONS (2)
  - Tuberculosis [Recovered/Resolved]
  - Tuberculin test positive [Recovered/Resolved]
